FAERS Safety Report 7974229-X (Version None)
Quarter: 2011Q4

REPORT INFORMATION
  Report Type: 
  Country: None (occurrence: None)
  Receive Date: 20111213
  Receipt Date: 20111208
  Transmission Date: 20120403
  Serious: Yes (Disabling, Other)
  Sender: FDA-Public Use
  Company Number: GB-MERCK-1107GBR00085

PATIENT
  Age: 37 Year
  Sex: Female
  Weight: 103 kg

DRUGS (7)
  1. CITALOPRAM HYDROBROMIDE [Concomitant]
     Route: 065
  2. OMALIZUMAB [Suspect]
     Route: 058
     Dates: start: 20091104, end: 20110504
  3. SINGULAIR [Suspect]
     Route: 048
     Dates: start: 20070101
  4. IPRATROPIUM BROMIDE [Suspect]
     Indication: ASTHMA
     Route: 065
  5. FLUTICASONE PROPIONATE AND SALMETEROL XINAFOATE [Suspect]
     Indication: ASTHMA
     Route: 065
     Dates: start: 20050101
  6. IPRATROPIUM BROMIDE [Concomitant]
     Route: 065
  7. ALBUTEROL [Concomitant]
     Route: 065

REACTIONS (7)
  - HEADACHE [None]
  - HEMIPARESIS [None]
  - TRANSIENT ISCHAEMIC ATTACK [None]
  - NERVOUS SYSTEM DISORDER [None]
  - SENSORY DISTURBANCE [None]
  - PARAESTHESIA [None]
  - DYSAESTHESIA [None]
